FAERS Safety Report 6401475-9 (Version None)
Quarter: 2009Q4

REPORT INFORMATION
  Report Type: 
  Country: None (occurrence: None)
  Receive Date: 20091015
  Receipt Date: 20070313
  Transmission Date: 20100525
  Serious: Yes (Disabling)
  Sender: FDA-Public Use
  Company Number: US-ASTRAZENECA-2006UW10792

PATIENT
  Sex: Male
  Weight: 122.5 kg

DRUGS (1)
  1. SEROQUEL [Suspect]
     Indication: SLEEP DISORDER
     Dosage: 25 MG - 100 MG
     Route: 048
     Dates: start: 20040323

REACTIONS (1)
  - ILL-DEFINED DISORDER [None]
